FAERS Safety Report 12986918 (Version 1)
Quarter: 2016Q4

REPORT INFORMATION
  Report Type: Spontaneous
  Country: US (occurrence: US)
  Receive Date: 20161130
  Receipt Date: 20161130
  Transmission Date: 20170207
  Serious: No
  Sender: FDA-Public Use
  Company Number: US-PFIZER INC-2016544109

PATIENT
  Age: 27 Year
  Sex: Female

DRUGS (1)
  1. IBRANCE [Suspect]
     Active Substance: PALBOCICLIB
     Dosage: 125 MG, CYCLIC (X 21 DYAS, 7 DAYS OFF)
     Dates: start: 20161111

REACTIONS (1)
  - Headache [Not Recovered/Not Resolved]
